FAERS Safety Report 4897715-8 (Version None)
Quarter: 2006Q1

REPORT INFORMATION
  Report Type: 
  Country: None (occurrence: None)
  Receive Date: 20060130
  Receipt Date: 20060130
  Transmission Date: 20060701
  Serious: Yes (Other)
  Sender: FDA-Public Use
  Company Number: None

PATIENT
  Age: 76 Year
  Sex: Male
  Weight: 85.7 kg

DRUGS (10)
  1. TRAMADOL [Suspect]
  2. COUMADIN [Concomitant]
  3. TAMSULOSIN HCL [Concomitant]
  4. LISINOPRIL [Concomitant]
  5. METOPROLOL TARTRATE [Concomitant]
  6. COUMADIN [Concomitant]
  7. AMOXICILLIN [Concomitant]
  8. SIMVASTATIN [Concomitant]
  9. TRAMADOL HCL [Concomitant]
  10. CELECOXIB [Concomitant]

REACTIONS (2)
  - CONFUSIONAL STATE [None]
  - DIZZINESS [None]
